FAERS Safety Report 4355131-1 (Version None)
Quarter: 2004Q2

REPORT INFORMATION
  Report Type: 
  Country: None (occurrence: None)
  Receive Date: 20040504
  Receipt Date: 20040419
  Transmission Date: 20050107
  Serious: Yes (Life-Threatening)
  Sender: FDA-Public Use
  Company Number: USA-2004-0014191

PATIENT
  Age: 2 Year
  Sex: Male
  Weight: 12.6 kg

DRUGS (3)
  1. CEFDITOREN PIVOXIL (SIMILAR TO NDA 21-222) (CEFDITOREN PIVOXIL) [Suspect]
     Indication: ASTHMA
     Dosage: 10 MG/KG, DAILY, ORAL
     Route: 048
     Dates: start: 20040326, end: 20040327
  2. CEFDITOREN PIVOXIL (SIMILAR TO NDA 21-222) (CEFDITOREN PIVOXIL) [Suspect]
     Indication: OTITIS MEDIA
     Dosage: 10 MG/KG, DAILY, ORAL
     Route: 048
     Dates: start: 20040326, end: 20040327
  3. THEO-DUR [Suspect]
     Indication: ASTHMA
     Dosage: 10 MG/KG, DAILY, ORAL
     Route: 048
     Dates: start: 20040326

REACTIONS (8)
  - BODY TEMPERATURE DECREASED [None]
  - CONVULSION [None]
  - DEHYDRATION [None]
  - DIARRHOEA [None]
  - DYSPNOEA [None]
  - FATIGUE [None]
  - GENERAL PHYSICAL CONDITION ABNORMAL [None]
  - OXYGEN SATURATION DECREASED [None]
